FAERS Safety Report 15244050 (Version 1)
Quarter: 2018Q3

REPORT INFORMATION
  Report Type: Spontaneous
  Country: US (occurrence: US)
  Receive Date: 20180712
  Receipt Date: 20180712
  Transmission Date: 20181010
  Serious: No
  Sender: FDA-Public Use
  Company Number: None

PATIENT
  Sex: Female

DRUGS (1)
  1. LEVOFLOXACIN. [Suspect]
     Active Substance: LEVOFLOXACIN
     Indication: PERTUSSIS

REACTIONS (5)
  - Headache [None]
  - Vaginal haemorrhage [None]
  - Ear discomfort [None]
  - Epistaxis [None]
  - Eye disorder [None]

NARRATIVE: CASE EVENT DATE: 20180621
